FAERS Safety Report 4933325-1 (Version None)
Quarter: 2006Q1

REPORT INFORMATION
  Report Type: 
  Country: None (occurrence: None)
  Receive Date: 20060106
  Receipt Date: 20050817
  Transmission Date: 20060701
  Serious: No
  Sender: FDA-Public Use
  Company Number: 200511649BWH

PATIENT
  Sex: Male

DRUGS (3)
  1. LEVITRA [Suspect]
     Indication: ERECTILE DYSFUNCTION
     Dosage: 5 MG, QD, ORAL
     Route: 048
  2. HEART MEDICATION [Concomitant]
  3. DIABETES MEDICATION [Concomitant]

REACTIONS (3)
  - ASTHENIA [None]
  - HYPERHIDROSIS [None]
  - VISUAL DISTURBANCE [None]
